FAERS Safety Report 8322674-5 (Version None)
Quarter: 2012Q2

REPORT INFORMATION
  Report Type: 
  Country: None (occurrence: None)
  Receive Date: 20120430
  Receipt Date: 20120425
  Transmission Date: 20120825
  Serious: Yes (Hospitalization, Disabling, Other)
  Sender: FDA-Public Use
  Company Number: US-MERCK-1105USA02549

PATIENT
  Age: 72 Year
  Sex: Female

DRUGS (7)
  1. FOSAMAX [Suspect]
     Route: 048
     Dates: start: 20060717, end: 20111001
  2. VITAMINS (UNSPECIFIED) [Concomitant]
     Route: 065
     Dates: start: 19700101
  3. FOSAMAX [Suspect]
     Indication: OSTEOPOROSIS
     Route: 048
     Dates: start: 20051001, end: 20100401
  4. FOSAMAX [Suspect]
     Indication: OSTEOPENIA
     Route: 048
     Dates: start: 20051001, end: 20100401
  5. FOSAMAX [Suspect]
     Route: 065
     Dates: start: 20070831, end: 20080101
  6. PROTONIX [Concomitant]
     Route: 065
     Dates: start: 20010101
  7. FOSAMAX [Suspect]
     Route: 065
     Dates: start: 20070831, end: 20080101

REACTIONS (23)
  - STRESS FRACTURE [None]
  - FEMUR FRACTURE [None]
  - LOW TURNOVER OSTEOPATHY [None]
  - PEPTIC ULCER [None]
  - SYNOVIAL CYST [None]
  - OEDEMA PERIPHERAL [None]
  - DIABETES MELLITUS [None]
  - CEREBRAL DISORDER [None]
  - LYMPHADENOPATHY [None]
  - STAPHYLOCOCCAL INFECTION [None]
  - DEPRESSION [None]
  - ASTHMA [None]
  - KNEE ARTHROPLASTY [None]
  - ANXIETY [None]
  - BONE MARROW OEDEMA [None]
  - DEVICE RELATED INFECTION [None]
  - GASTROOESOPHAGEAL REFLUX DISEASE [None]
  - DYSPEPSIA [None]
  - INFECTION [None]
  - TENDON RUPTURE [None]
  - ANGIOPATHY [None]
  - TENDON DISORDER [None]
  - SINUS DISORDER [None]
